FAERS Safety Report 23851334 (Version 2)
Quarter: 2025Q2

REPORT INFORMATION
  Report Type: Spontaneous
  Country: HR (occurrence: HR)
  Receive Date: 20240514
  Receipt Date: 20250519
  Transmission Date: 20250716
  Serious: Yes (Life-Threatening)
  Sender: BIOGEN
  Company Number: HR-BIOGEN-2024BI01264281

PATIENT

DRUGS (1)
  1. TECFIDERA [Suspect]
     Active Substance: DIMETHYL FUMARATE
     Indication: Product used for unknown indication
     Route: 050

REACTIONS (1)
  - Lymphopenia [Unknown]
